FAERS Safety Report 12565645 (Version 1)
Quarter: 2016Q3

REPORT INFORMATION
  Report Type: Spontaneous
  Country: KR (occurrence: KR)
  Receive Date: 20160718
  Receipt Date: 20160718
  Transmission Date: 20161109
  Serious: Yes (Death, Hospitalization)
  Sender: FDA-Public Use
  Company Number: KR-CELGENEUS-286-50794-13082563

PATIENT
  Age: 38 Year
  Sex: Male
  Weight: 69.4 kg

DRUGS (13)
  1. ORODIPINE [Concomitant]
     Indication: HYPERTENSION
     Dosage: 5 MILLIGRAM
     Route: 048
     Dates: end: 20130128
  2. ERYTHROPOIETIN [Concomitant]
     Active Substance: ERYTHROPOIETIN
     Indication: ANAEMIA
     Dosage: 6024 IU (INTERNATIONAL UNIT)
     Route: 041
     Dates: end: 20130128
  3. DUROGESIC [Concomitant]
     Active Substance: FENTANYL
     Indication: PAIN
     Dosage: 36 MICROGRAM
     Route: 065
     Dates: start: 20130125, end: 20130128
  4. ATENOLOL. [Concomitant]
     Active Substance: ATENOLOL
     Indication: HYPERTENSION
     Route: 048
     Dates: start: 20130110, end: 20130122
  5. ATENOLOL. [Concomitant]
     Active Substance: ATENOLOL
     Route: 048
     Dates: end: 20130128
  6. DEXAMETHASONE. [Concomitant]
     Active Substance: DEXAMETHASONE
     Route: 048
     Dates: end: 20130128
  7. VIDAZA [Suspect]
     Active Substance: AZACITIDINE
     Indication: MYELODYSPLASTIC SYNDROME
     Dosage: 46.3 MILLIGRAM
     Route: 065
     Dates: start: 20121103, end: 20121211
  8. PARAMACET [Concomitant]
     Active Substance: ACETAMINOPHEN\TRAMADOL
     Indication: PAIN
     Dosage: 6 TABLET
     Route: 048
     Dates: start: 20130108, end: 20130128
  9. FEROBA [Concomitant]
     Active Substance: FERROUS SULFATE\PROTEASE
     Indication: ANAEMIA
     Dosage: 512 MILLIGRAM
     Route: 048
     Dates: end: 20130128
  10. CALCITROL [Concomitant]
     Active Substance: CALCITRIOL
     Indication: HAEMODIALYSIS
     Route: 048
     Dates: start: 20130110, end: 20130122
  11. DEXAMETHASONE. [Concomitant]
     Active Substance: DEXAMETHASONE
     Indication: ASTHENIA
     Route: 048
     Dates: start: 20130110, end: 20130122
  12. CALCITROL [Concomitant]
     Active Substance: CALCITRIOL
     Route: 048
     Dates: end: 20130128
  13. PANTOLOC [Concomitant]
     Active Substance: PANTOPRAZOLE SODIUM
     Indication: HAEMORRHAGE
     Dosage: 40 MILLIGRAM
     Route: 041
     Dates: start: 20130128, end: 20130128

REACTIONS (2)
  - Epistaxis [Fatal]
  - Cellulitis [Recovered/Resolved with Sequelae]

NARRATIVE: CASE EVENT DATE: 20130110
